FAERS Safety Report 25473909 (Version 1)
Quarter: 2025Q2

REPORT INFORMATION
  Report Type: Spontaneous
  Country: US (occurrence: US)
  Receive Date: 20250624
  Receipt Date: 20250624
  Transmission Date: 20250717
  Serious: No
  Sender: KRAMER LABORATORIES
  Company Number: US-KRAMERLABS-2025-US-026534

PATIENT

DRUGS (3)
  1. NIZORAL [Suspect]
     Active Substance: KETOCONAZOLE
     Indication: Product used for unknown indication
     Route: 061
  2. NIZORAL [Suspect]
     Active Substance: KETOCONAZOLE
     Route: 061
  3. NIZORAL [Suspect]
     Active Substance: KETOCONAZOLE

REACTIONS (2)
  - Alopecia [Unknown]
  - Suspected counterfeit product [Unknown]
